FAERS Safety Report 7667184-3 (Version None)
Quarter: 2011Q3

REPORT INFORMATION
  Report Type: 
  Country: None (occurrence: None)
  Receive Date: 20110806
  Receipt Date: 20110512
  Transmission Date: 20111222
  Serious: No
  Sender: FDA-Public Use
  Company Number: US-ABBOTT-11P-163-0725239-00

PATIENT
  Sex: Female
  Weight: 107.14 kg

DRUGS (17)
  1. HYDROCODONE [Concomitant]
     Indication: PAIN
  2. ADVAIR DISKUS 100/50 [Concomitant]
     Indication: CHRONIC OBSTRUCTIVE PULMONARY DISEASE
  3. LANTUS [Concomitant]
     Indication: DIABETES MELLITUS
  4. VITAMIN D2 [Concomitant]
     Indication: PRODUCT USED FOR UNKNOWN INDICATION
  5. FERROUS SULFATE TAB [Concomitant]
     Indication: PRODUCT USED FOR UNKNOWN INDICATION
  6. WARFARIN SODIUM [Concomitant]
     Indication: THROMBOSIS
  7. AMLODIPINE [Concomitant]
     Indication: HYPERTENSION
  8. VENTOLIN HFA [Concomitant]
     Indication: CHRONIC OBSTRUCTIVE PULMONARY DISEASE
  9. SENSIPAR [Concomitant]
     Indication: RENAL DISORDER
  10. TRAVATAN [Concomitant]
     Indication: GLAUCOMA
  11. SINGULAIR [Concomitant]
     Indication: ASTHMA
  12. FUROSEMIDE [Concomitant]
     Indication: FLUID RETENTION
  13. ALLOPURINOL [Concomitant]
     Indication: GOUT
  14. NIASPAN [Suspect]
     Indication: BLOOD CHOLESTEROL INCREASED
     Dates: start: 20110401
  15. LEVOTHYROXINE SODIUM [Concomitant]
     Indication: PRODUCT USED FOR UNKNOWN INDICATION
  16. SIMVASTATIN [Concomitant]
     Indication: BLOOD CHOLESTEROL INCREASED
  17. SINGULAIR [Concomitant]
     Indication: HYPERSENSITIVITY

REACTIONS (3)
  - PRURITUS [None]
  - SKIN BURNING SENSATION [None]
  - MUSCULAR WEAKNESS [None]
